FAERS Safety Report 18483350 (Version 1)
Quarter: 2020Q4

REPORT INFORMATION
  Report Type: Spontaneous
  Country: US (occurrence: US)
  Receive Date: 20201110
  Receipt Date: 20201110
  Transmission Date: 20210114
  Serious: No
  Sender: FDA-Public Use
  Company Number: US-AUROBINDO-AUR-APL-2020-030615

PATIENT
  Age: 44 Year
  Sex: Female
  Weight: 55.78 kg

DRUGS (2)
  1. INCASSIA [Suspect]
     Active Substance: NORETHINDRONE
     Indication: HYPOMENORRHOEA
     Dosage: DAILY
     Route: 065
     Dates: end: 20200705
  2. INCASSIA [Suspect]
     Active Substance: NORETHINDRONE
     Indication: CONTRACEPTION
     Dosage: DAILY
     Route: 065
     Dates: start: 20200416

REACTIONS (16)
  - Alopecia [Recovered/Resolved]
  - Eye irritation [Recovered/Resolved]
  - Depressed mood [Recovered/Resolved]
  - Anger [Recovered/Resolved]
  - Headache [Recovered/Resolved]
  - Pain [Recovered/Resolved]
  - Product substitution issue [Unknown]
  - Weight increased [Recovered/Resolved]
  - Musculoskeletal stiffness [Recovered/Resolved]
  - Paraesthesia [Recovered/Resolved]
  - Dizziness [Recovered/Resolved]
  - Anxiety [Recovered/Resolved]
  - Vaginal haemorrhage [Recovered/Resolved]
  - Product dose omission issue [Unknown]
  - Fatigue [Recovered/Resolved]
  - Abdominal distension [Recovered/Resolved]
